FAERS Safety Report 9011694 (Version 1)
Quarter: 2013Q1

REPORT INFORMATION
  Report Type: Spontaneous
  Country: US (occurrence: US)
  Receive Date: 20130102
  Receipt Date: 20130102
  Transmission Date: 20140127
  Serious: Yes (Other)
  Sender: FDA-Public Use
  Company Number: PHEH2012US025414

PATIENT
  Sex: Female

DRUGS (4)
  1. STALEVO [Suspect]
     Dosage: 50 MG UNK
  2. NEXIUM 1-2-3 [Concomitant]
  3. DIATROPAN [Concomitant]
  4. INDERAL [Concomitant]

REACTIONS (2)
  - Hearing impaired [Unknown]
  - Eye disorder [Unknown]
